FAERS Safety Report 4802493-4 (Version None)
Quarter: 2005Q4

REPORT INFORMATION
  Report Type: 
  Country: None (occurrence: None)
  Receive Date: 20051013
  Receipt Date: 20051005
  Transmission Date: 20060501
  Serious: Yes (Other)
  Sender: FDA-Public Use
  Company Number: 2005122045

PATIENT
  Age: 47 Year
  Sex: Male
  Weight: 74.8435 kg

DRUGS (5)
  1. NEURONTIN [Suspect]
     Indication: ANXIETY
     Dosage: 600 MG (200 MG, 3 IN 1 D) ORAL
     Route: 048
     Dates: start: 20050823, end: 20050827
  2. ALL OTHER NON-THERAPEUTIC PRODUCTS (ALL OTHER NON-THERAPEUTIC PRODUCTS [Suspect]
     Indication: ILL-DEFINED DISORDER
     Dosage: ORAL
     Route: 048
     Dates: start: 20050801
  3. LEXAPRO [Suspect]
     Indication: ILL-DEFINED DISORDER
     Dates: start: 20050901, end: 20050901
  4. KLONOPIN [Concomitant]
  5. DEPAKOTE [Concomitant]

REACTIONS (6)
  - BLOOD PRESSURE FLUCTUATION [None]
  - DYSPNOEA [None]
  - FOOD POISONING [None]
  - HYPERSENSITIVITY [None]
  - RETCHING [None]
  - THROAT TIGHTNESS [None]
